FAERS Safety Report 5684152-1 (Version None)
Quarter: 2008Q1

REPORT INFORMATION
  Report Type: 
  Country: None (occurrence: None)
  Receive Date: 20080328
  Receipt Date: 20070415
  Transmission Date: 20080703
  Serious: No
  Sender: FDA-Public Use
  Company Number: US-AMGEN-US208574

PATIENT
  Sex: Female
  Weight: 72 kg

DRUGS (5)
  1. NEULASTA [Suspect]
     Indication: CHEMOTHERAPY
     Route: 065
     Dates: start: 20061202, end: 20061202
  2. ETOPOSIDE [Concomitant]
     Route: 065
  3. CARBOPLATIN [Concomitant]
     Route: 042
  4. DECADRON [Concomitant]
     Route: 042
     Dates: start: 20061129
  5. ALOXI [Concomitant]
     Route: 042

REACTIONS (12)
  - ASTHENIA [None]
  - BLINDNESS [None]
  - CHEST PAIN [None]
  - DYSGEUSIA [None]
  - FALL [None]
  - GAIT DISTURBANCE [None]
  - HEADACHE [None]
  - HYPERHIDROSIS [None]
  - HYPOAESTHESIA [None]
  - RHINORRHOEA [None]
  - TRANSIENT ISCHAEMIC ATTACK [None]
  - VISUAL DISTURBANCE [None]
